FAERS Safety Report 19000195 (Version 2)
Quarter: 2021Q3

REPORT INFORMATION
  Report Type: Report from Study
  Country: US (occurrence: US)
  Receive Date: 20210312
  Receipt Date: 20210823
  Transmission Date: 20211014
  Serious: Yes (Hospitalization)
  Sender: FDA-Public Use
  Company Number: US-TOPROL-2021000036

PATIENT
  Age: 66 Year
  Sex: Female
  Weight: 96.7 kg

DRUGS (13)
  1. FLUAD QUADRIVALENT INFLUENZA VACCINE [Concomitant]
     Dosage: AT RIGHT DELTOID, AT 9:28
     Route: 030
     Dates: start: 20201029, end: 20201029
  2. PF?06482077, 20?VALENT PNEUMOCOCCAL CONJUGATE VACCINE (20VPNC) [Suspect]
     Active Substance: INVESTIGATIONAL PRODUCT
     Dosage: 10.25 AT LEFT DELTOID AT SINGLE DOSE
     Route: 030
     Dates: start: 20201130, end: 20201130
  3. ASPIRIN. [Concomitant]
     Active Substance: ASPIRIN
     Dates: start: 2016
  4. METOPROLOL. [Suspect]
     Active Substance: METOPROLOL
     Route: 048
     Dates: start: 2005, end: 20201216
  5. LOVAZA [Concomitant]
     Active Substance: OMEGA-3-ACID ETHYL ESTERS
     Dates: start: 2019
  6. LEXAPRO [Concomitant]
     Active Substance: ESCITALOPRAM OXALATE
     Dates: start: 2017
  7. LISINOPRIL AND HYDROCHLOROTHIAZIDE [Suspect]
     Active Substance: HYDROCHLOROTHIAZIDE\LISINOPRIL
     Dosage: HYDROCHLOROTHIAZIDE 20 MG/LISINOPRIL 12.5 MG
     Route: 048
  8. DOXEPIN [Concomitant]
     Active Substance: DOXEPIN
     Dates: start: 202007
  9. CRESTOR [Concomitant]
     Active Substance: ROSUVASTATIN CALCIUM
     Dates: start: 2019
  10. LEVOTHYROXINE. [Concomitant]
     Active Substance: LEVOTHYROXINE
     Dates: start: 2012
  11. LISINOPRIL AND HYDROCHLOROTHIAZIDE [Suspect]
     Active Substance: HYDROCHLOROTHIAZIDE\LISINOPRIL
     Dosage: HYDROCHLOROTHIAZIDE 20 MG/LISINOPRIL 12.5 MG
     Route: 048
     Dates: start: 2005, end: 20201216
  12. AMLODIPINE BESILATE [Suspect]
     Active Substance: AMLODIPINE BESYLATE
     Route: 048
     Dates: start: 2016
  13. OMEPRAZOL [Concomitant]
     Active Substance: OMEPRAZOLE
     Dates: start: 2019

REACTIONS (2)
  - Syncope [Recovered/Resolved]
  - Fracture [Unknown]

NARRATIVE: CASE EVENT DATE: 20201216
